FAERS Safety Report 8130822-5 (Version None)
Quarter: 2012Q1

REPORT INFORMATION
  Report Type: 
  Country: None (occurrence: None)
  Receive Date: 20120213
  Receipt Date: 20120203
  Transmission Date: 20120608
  Serious: No
  Sender: FDA-Public Use
  Company Number: US-BIOGENIDEC-2012BI004645

PATIENT
  Age: 45 Year
  Sex: Female

DRUGS (3)
  1. AVONEX [Suspect]
     Indication: MULTIPLE SCLEROSIS
     Route: 030
     Dates: start: 20120131
  2. PIROXICAM [Concomitant]
     Indication: MIGRAINE
  3. PROMETHAZINE [Concomitant]
     Indication: MIGRAINE

REACTIONS (10)
  - PYREXIA [None]
  - NAUSEA [None]
  - MIGRAINE [None]
  - DIARRHOEA [None]
  - INSOMNIA [None]
  - TREMOR [None]
  - SLEEP TALKING [None]
  - VISUAL IMPAIRMENT [None]
  - ABNORMAL DREAMS [None]
  - CHILLS [None]
